FAERS Safety Report 9318641 (Version 1)
Quarter: 2013Q2

REPORT INFORMATION
  Report Type: Spontaneous
  Country: GB (occurrence: None)
  Receive Date: 20130524
  Receipt Date: 20130524
  Transmission Date: 20140414
  Serious: Yes (Hospitalization, Other)
  Sender: FDA-Public Use
  Company Number: 2013P1006355

PATIENT
  Sex: Female

DRUGS (10)
  1. DIGOXIN [Suspect]
     Route: 048
  2. PENICILLIN V POTASSIUM [Suspect]
  3. WARFARIN SODIUM [Suspect]
     Dates: start: 20110309
  4. AMIODARONE [Concomitant]
  5. BISOPROLOL [Concomitant]
  6. FRUSEMIDE [Concomitant]
  7. LOSARTAN [Concomitant]
  8. POTASSIUM [Concomitant]
  9. ROSUVASTATIN [Concomitant]
  10. ZOPICLONE [Concomitant]

REACTIONS (5)
  - Vision blurred [None]
  - Contusion [None]
  - Cardiac failure chronic [None]
  - Drug interaction [None]
  - International normalised ratio increased [None]
